FAERS Safety Report 16754553 (Version 2)
Quarter: 2019Q3

REPORT INFORMATION
  Report Type: Report from Study
  Country: EG (occurrence: EG)
  Receive Date: 20190829
  Receipt Date: 20190923
  Transmission Date: 20191005
  Serious: Yes (Other)
  Sender: FDA-Public Use
  Company Number: PHHY2019EG200220

PATIENT
  Age: 48 Year
  Sex: Female

DRUGS (2)
  1. CALDIN C [Concomitant]
     Indication: PRODUCT USED FOR UNKNOWN INDICATION
     Dosage: UNK
     Route: 065
  2. KISQALI [Suspect]
     Active Substance: RIBOCICLIB
     Indication: BONE CANCER
     Dosage: 600 MG, QD
     Route: 048
     Dates: start: 20190301

REACTIONS (5)
  - Abdominal pain [Not Recovered/Not Resolved]
  - Product use in unapproved indication [Unknown]
  - Dysstasia [Not Recovered/Not Resolved]
  - Bone pain [Not Recovered/Not Resolved]
  - Feeding disorder [Not Recovered/Not Resolved]

NARRATIVE: CASE EVENT DATE: 20190822
